FAERS Safety Report 23838657 (Version 2)
Quarter: 2024Q2

REPORT INFORMATION
  Report Type: Report from Study
  Country: ES (occurrence: ES)
  Receive Date: 20240509
  Receipt Date: 20240530
  Transmission Date: 20240716
  Serious: Yes (Other)
  Sender: FDA-Public Use
  Company Number: ES-ABBVIE-5429950

PATIENT
  Sex: Female
  Weight: 100 kg

DRUGS (4)
  1. CARBIDOPA\LEVODOPA [Suspect]
     Active Substance: CARBIDOPA\LEVODOPA
     Indication: Parkinson^s disease
     Route: 050
     Dates: start: 20230607, end: 20240502
  2. CARBIDOPA\LEVODOPA [Suspect]
     Active Substance: CARBIDOPA\LEVODOPA
     Dosage: DOSE CHANGED?LAST ADMIN DATE: MAY 2024
     Route: 050
     Dates: start: 20240502
  3. CARBIDOPA\LEVODOPA [Suspect]
     Active Substance: CARBIDOPA\LEVODOPA
     Dosage: DOSE ADJUSTED??FIRST ADMIN DATE: MAY 2024
     Route: 050
  4. AMPICILLIN [Concomitant]
     Active Substance: AMPICILLIN
     Indication: Product used for unknown indication

REACTIONS (14)
  - Gastric ulcer [Recovering/Resolving]
  - Stoma site discharge [Unknown]
  - Therapeutic product effect incomplete [Unknown]
  - Stoma site hypergranulation [Recovered/Resolved]
  - Stoma site discharge [Recovering/Resolving]
  - Dyskinesia [Unknown]
  - Candida infection [Recovering/Resolving]
  - Stoma site erythema [Unknown]
  - Bacterial test positive [Not Recovered/Not Resolved]
  - Streptococcus test positive [Not Recovered/Not Resolved]
  - Pathogen resistance [Unknown]
  - Candida infection [Recovering/Resolving]
  - Stoma site hypergranulation [Not Recovered/Not Resolved]
  - Klebsiella test positive [Unknown]

NARRATIVE: CASE EVENT DATE: 20230101
